FAERS Safety Report 10347636 (Version 7)
Quarter: 2016Q3

REPORT INFORMATION
  Report Type: Spontaneous
  Country: JP (occurrence: JP)
  Receive Date: 20140729
  Receipt Date: 20160811
  Transmission Date: 20161109
  Serious: Yes (Life-Threatening, Hospitalization, Disabling, Other)
  Sender: FDA-Public Use
  Company Number: JP-ACTELION-A-CH2014-102654

PATIENT
  Age: 68 Year
  Sex: Female
  Weight: 44 kg

DRUGS (20)
  1. ADCIRCA [Suspect]
     Active Substance: TADALAFIL
     Indication: PULMONARY ARTERIAL HYPERTENSION
     Dosage: 40 MG, UNK
     Route: 048
     Dates: start: 20100615, end: 20140420
  2. AMLODIPINE BESILATE W/VALSARTAN [Concomitant]
     Active Substance: AMLODIPINE BESYLATE\VALSARTAN
  3. FUROSEMIDE. [Concomitant]
     Active Substance: FUROSEMIDE
  4. FERROMIA [Concomitant]
     Active Substance: FERROUS CITRATE
  5. OXYGEN. [Concomitant]
     Active Substance: OXYGEN
  6. SODIUM RISEDRONATE HYDRATE [Concomitant]
  7. METOCLOPRAMIDE. [Concomitant]
     Active Substance: METOCLOPRAMIDE
  8. CICLOSPORIN [Concomitant]
     Active Substance: CYCLOSPORINE
  9. CALCIUM CARBONATE W/COLECALCIFEROL/MAGNESIUM [Concomitant]
  10. FLUNITRAZEPAM [Concomitant]
     Active Substance: FLUNITRAZEPAM
  11. PREDNISOLONE. [Concomitant]
     Active Substance: PREDNISOLONE
  12. TRAMADOL HYDROCHLORIDE AND ACETAMINOPHEN [Concomitant]
     Active Substance: ACETAMINOPHEN\TRAMADOL HYDROCHLORIDE
  13. VELETRI [Suspect]
     Active Substance: EPOPROSTENOL
     Dosage: 40 NG/KG, PER MIN
     Route: 042
     Dates: start: 20140817
  14. ELTROMBOPAG OLAMINE [Concomitant]
     Active Substance: ELTROMBOPAG OLAMINE
  15. LANSOPRAZOLE. [Concomitant]
     Active Substance: LANSOPRAZOLE
  16. POTASSIUM CHLORIDE. [Concomitant]
     Active Substance: POTASSIUM CHLORIDE
  17. VELETRI [Suspect]
     Active Substance: EPOPROSTENOL
     Indication: PULMONARY ARTERIAL HYPERTENSION
     Dosage: 40 NG/KG, PER MIN
     Route: 042
     Dates: start: 201307, end: 20140725
  18. SPIRONOLACTONE. [Concomitant]
     Active Substance: SPIRONOLACTONE
  19. SODIUM RABEPRAZOLE [Concomitant]
     Active Substance: RABEPRAZOLE SODIUM
  20. TEPRENONE [Concomitant]
     Active Substance: TEPRENONE

REACTIONS (15)
  - Gastroenteritis [Recovering/Resolving]
  - Treatment noncompliance [Unknown]
  - Paralysis [Recovering/Resolving]
  - Device leakage [Recovered/Resolved]
  - Arrhythmia [Recovering/Resolving]
  - Loss of consciousness [Recovered/Resolved with Sequelae]
  - Activities of daily living impaired [Not Recovered/Not Resolved]
  - Brain stem haemorrhage [Recovering/Resolving]
  - Platelet transfusion [Unknown]
  - Dysphagia [Unknown]
  - Device breakage [Recovered/Resolved]
  - Device occlusion [Recovered/Resolved]
  - Catheter removal [Recovered/Resolved]
  - Pneumothorax [Recovered/Resolved]
  - Intentional self-injury [Unknown]

NARRATIVE: CASE EVENT DATE: 20140420
